FAERS Safety Report 12541468 (Version 2)
Quarter: 2016Q3

REPORT INFORMATION
  Report Type: Report from Study
  Country: DE (occurrence: DE)
  Receive Date: 20160708
  Receipt Date: 20160801
  Transmission Date: 20161109
  Serious: Yes (Hospitalization, Other)
  Sender: FDA-Public Use
  Company Number: DE-ABBVIE-16K-062-1666791-00

PATIENT
  Age: 75 Year
  Sex: Male

DRUGS (5)
  1. JANUMED-SPASME [Concomitant]
     Indication: PRODUCT USED FOR UNKNOWN INDICATION
  2. CEFTRIAXON [Concomitant]
     Active Substance: CEFTRIAXONE
     Indication: PRODUCT USED FOR UNKNOWN INDICATION
  3. DUODOPA [Suspect]
     Active Substance: CARBIDOPA\LEVODOPA
     Indication: PARKINSON^S DISEASE
     Dosage: MD 9.0ML / CRD 4.5 ML/H  / ED 2.0ML
     Route: 050
     Dates: start: 20150921
  4. TAMSULOSIN [Concomitant]
     Active Substance: TAMSULOSIN
     Indication: PRODUCT USED FOR UNKNOWN INDICATION
  5. AMANTADIN [Concomitant]
     Active Substance: AMANTADINE
     Indication: PRODUCT USED FOR UNKNOWN INDICATION

REACTIONS (1)
  - Gallbladder operation [Recovering/Resolving]

NARRATIVE: CASE EVENT DATE: 20160615
